FAERS Safety Report 8788675 (Version 1)
Quarter: 2012Q4

REPORT INFORMATION
  Report Type: 
  Country: SE (occurrence: SE)
  Receive Date: 20120915
  Receipt Date: 20120915
  Transmission Date: 20130627
  Serious: Yes (Life-Threatening, Hospitalization, Other)
  Sender: FDA-Public Use
  Company Number: SE-ABBOTT-12P-150-0978842-00

PATIENT
  Age: 30 Year
  Sex: Female

DRUGS (1)
  1. POTASSIUM CHLORIDE [Suspect]
     Indication: PRODUCT USED FOR UNKNOWN INDICATION
     Route: 048

REACTIONS (9)
  - Intentional overdose [Recovered/Resolved]
  - Hyperkalaemia [Recovered/Resolved]
  - Suicide attempt [Recovered/Resolved]
  - Somnolence [None]
  - Feeling abnormal [None]
  - Haemodialysis [None]
  - Duodenal stenosis [None]
  - Impaired gastric emptying [None]
  - Pulmonary embolism [None]
